FAERS Safety Report 4326205-6 (Version None)
Quarter: 2004Q1

REPORT INFORMATION
  Report Type: 
  Country: None (occurrence: None)
  Receive Date: 20040324
  Receipt Date: 20040318
  Transmission Date: 20041129
  Serious: Yes (Other)
  Sender: FDA-Public Use
  Company Number: HQWYE906711FEB04

PATIENT
  Age: 65 Year
  Sex: Male

DRUGS (4)
  1. CORDARONE [Suspect]
     Indication: ARRHYTHMIA
     Dosage: 200 MG 5X PER 1 WK ORAL
     Route: 048
     Dates: start: 19970101, end: 20040101
  2. PREVISCAN (FLUINDIONE) [Concomitant]
  3. DIGOXIN [Concomitant]
  4. DUXIL (ALMITRINE DIMESILATE/RAUBASINE) [Concomitant]

REACTIONS (5)
  - COGNITIVE DISORDER [None]
  - DEMENTIA [None]
  - DRUG TOXICITY [None]
  - MENTAL IMPAIRMENT [None]
  - NUCLEAR MAGNETIC RESONANCE IMAGING BRAIN ABNORMAL [None]
